FAERS Safety Report 4293671-4 (Version None)
Quarter: 2004Q1

REPORT INFORMATION
  Report Type: 
  Country: None (occurrence: None)
  Receive Date: 20040212
  Receipt Date: 20040203
  Transmission Date: 20041129
  Serious: Yes (Hospitalization)
  Sender: FDA-Public Use
  Company Number: US-BRISTOL-MYERS SQUIBB COMPANY-12494134

PATIENT
  Age: 57 Year
  Sex: Male
  Weight: 82 kg

DRUGS (4)
  1. PARAPLATIN [Suspect]
     Indication: NON-SMALL CELL LUNG CANCER
     Route: 042
     Dates: start: 20040114, end: 20040114
  2. PACLITAXEL [Suspect]
     Indication: NON-SMALL CELL LUNG CANCER
     Route: 042
     Dates: start: 20040114, end: 20040114
  3. DEXAMETHASONE [Concomitant]
     Dates: start: 20040114, end: 20040114
  4. DIPHENHYDRAMINE HCL [Concomitant]
     Dates: start: 20040114, end: 20040114

REACTIONS (3)
  - DEHYDRATION [None]
  - NAUSEA [None]
  - VOMITING [None]
